FAERS Safety Report 5384004-0 (Version None)
Quarter: 2007Q3

REPORT INFORMATION
  Report Type: 
  Country: None (occurrence: None)
  Receive Date: 20070711
  Receipt Date: 20070704
  Transmission Date: 20080115
  Serious: Yes (Hospitalization)
  Sender: FDA-Public Use
  Company Number: IN-AVENTIS-200716028GDDC

PATIENT
  Age: 49 Year
  Sex: Male

DRUGS (5)
  1. ARAVA [Suspect]
     Indication: PSORIATIC ARTHROPATHY
     Route: 048
     Dates: start: 20070607, end: 20070614
  2. METHOTREXATE [Concomitant]
     Indication: PSORIASIS
     Route: 048
     Dates: start: 20070607, end: 20070614
  3. METHOTREXATE [Concomitant]
     Indication: PSORIATIC ARTHROPATHY
     Route: 048
     Dates: start: 20070607, end: 20070614
  4. UDIHEP [Concomitant]
     Route: 048
     Dates: start: 20070607, end: 20070614
  5. SELACE FORTE [Concomitant]
     Dosage: DOSE QUANTITY: 1
     Route: 048
     Dates: start: 20070607, end: 20070614

REACTIONS (2)
  - HEPATOTOXICITY [None]
  - VOMITING [None]
